FAERS Safety Report 17217835 (Version 1)
Quarter: 2019Q4

REPORT INFORMATION
  Report Type: Other
  Country: CN (occurrence: CN)
  Receive Date: 20191231
  Receipt Date: 20191231
  Transmission Date: 20200122
  Serious: Yes (Hospitalization)
  Sender: FDA-Public Use
  Company Number: CN-JIANGSU HENGRUI MEDICINE CO., LTD.-2078362

PATIENT
  Age: 64 Year
  Sex: Male
  Weight: 53 kg

DRUGS (6)
  1. CYCLOPHOSPHAMIDE FOR INJECTION USP, 500 MG, 1 G AND 2 G PER SINGLE-DOS [Suspect]
     Active Substance: CYCLOPHOSPHAMIDE
     Indication: DIFFUSE LARGE B-CELL LYMPHOMA
     Route: 041
     Dates: start: 20190814, end: 20190814
  2. DOXORUBICIN HYDROCHLORIDE LIPOSOME INJECTION [Suspect]
     Active Substance: DOXORUBICIN HYDROCHLORIDE
     Route: 041
     Dates: start: 20190814, end: 20190814
  3. RITUXIMAB INJECTION [Suspect]
     Active Substance: RITUXIMAB
     Route: 041
     Dates: start: 20190813, end: 20190813
  4. CEDARAMINE TABLETS [Suspect]
     Active Substance: INVESTIGATIONAL PRODUCT
     Route: 048
     Dates: start: 20190814, end: 20190901
  5. CYCLOPHOSPHAMIDE FOR INJECTION USP, 500 MG, 1 G AND 2 G PER SINGLE-DOS [Suspect]
     Active Substance: CYCLOPHOSPHAMIDE
     Indication: NON-HODGKIN^S LYMPHOMA
     Route: 041
     Dates: start: 20190814, end: 20190814
  6. VINDESINE SULFATE FOR INJECTION [Suspect]
     Active Substance: VINDESINE SULFATE
     Route: 041
     Dates: start: 20190814, end: 20190814

REACTIONS (4)
  - Bone marrow failure [Recovering/Resolving]
  - Gastrooesophageal reflux disease [Recovering/Resolving]
  - Nausea [Recovering/Resolving]
  - Pyrexia [Recovering/Resolving]

NARRATIVE: CASE EVENT DATE: 20190825
